FAERS Safety Report 17307602 (Version 1)
Quarter: 2020Q1

REPORT INFORMATION
  Report Type: Spontaneous
  Country: US (occurrence: US)
  Receive Date: 20200123
  Receipt Date: 20200123
  Transmission Date: 20200409
  Serious: No
  Sender: FDA-Public Use
  Company Number: US-BRISTOL-MYERS SQUIBB COMPANY-17221698

PATIENT
  Age: 45 Year
  Sex: Male

DRUGS (2)
  1. WARFARIN SODIUM. [Suspect]
     Active Substance: WARFARIN SODIUM
     Indication: HEPATITIS C
     Dosage: RESTARTED AT 5MG/DAY,INCREASED TO 6MG/DAY, 9MG/DAY AND REDUCED TO 7.5MG/DAY AND 7 MG/DAY
     Route: 065
  2. TELAPREVIR [Interacting]
     Active Substance: TELAPREVIR
     Indication: HEPATITIS C
     Dosage: 750 MG, INTERMITTENT
     Route: 048
     Dates: start: 20110907, end: 20111129

REACTIONS (2)
  - International normalised ratio fluctuation [Unknown]
  - Drug interaction [Unknown]
